FAERS Safety Report 4895071-2 (Version None)
Quarter: 2006Q1

REPORT INFORMATION
  Report Type: 
  Country: None (occurrence: None)
  Receive Date: 20060130
  Receipt Date: 20060120
  Transmission Date: 20060701
  Serious: Yes (Other)
  Sender: FDA-Public Use
  Company Number: PHEH2006US01188

PATIENT
  Age: 6 Year
  Sex: Male

DRUGS (1)
  1. FOCALIN XR [Suspect]
     Dosage: 20 MG IN AM + 10 MG IN NOON
     Route: 048

REACTIONS (2)
  - INTRAOCULAR PRESSURE INCREASED [None]
  - VISUAL DISTURBANCE [None]
